FAERS Safety Report 13773456 (Version 2)
Quarter: 2017Q3

REPORT INFORMATION
  Report Type: Spontaneous
  Country: US (occurrence: US)
  Receive Date: 20170720
  Receipt Date: 20170920
  Transmission Date: 20171127
  Serious: No
  Sender: FDA-Public Use
  Company Number: US-RECKITT BENCKISER HEALTHCARE INT LIMITED-RB-82146-2017

PATIENT
  Sex: Male

DRUGS (2)
  1. MUCINEX [Suspect]
     Active Substance: GUAIFENESIN
     Indication: BRONCHITIS
     Dosage: 2 DF, UNK
     Route: 065
  2. MUCINEX MAXIMUM STRENGTH [Suspect]
     Active Substance: GUAIFENESIN
     Indication: BRONCHITIS
     Dosage: 2400 MG, SINGLE
     Route: 065
     Dates: start: 201611

REACTIONS (3)
  - Product use in unapproved indication [Recovered/Resolved]
  - Accidental overdose [Recovered/Resolved]
  - Product selection error [Recovered/Resolved]

NARRATIVE: CASE EVENT DATE: 201611
